FAERS Safety Report 6602028-X (Version None)
Quarter: 2010Q1

REPORT INFORMATION
  Report Type: 
  Country: None (occurrence: None)
  Receive Date: 20100225
  Receipt Date: 20100216
  Transmission Date: 20100710
  Serious: Yes (Other)
  Sender: FDA-Public Use
  Company Number: US-WATSON-2010-00763

PATIENT
  Sex: Female
  Weight: 73.9 kg

DRUGS (6)
  1. NICOTINE POLACRILEX (WATSON LABORATORIES) [Suspect]
     Indication: SMOKING CESSATION THERAPY
     Dosage: 510 PIECES, 170 PIECES/WEEK
     Route: 002
     Dates: start: 19970301
  2. NICOTINE POLACRILEX (WATSON LABORATORIES) [Suspect]
     Dosage: 510 PIECES, 170 PIECES/WEEK
     Route: 002
     Dates: start: 19970301
  3. PAXIL [Concomitant]
     Indication: DRUG USE FOR UNKNOWN INDICATION
     Dosage: 40 MG, DAILY
     Route: 065
  4. BIRTH CONTROL [Concomitant]
     Indication: DRUG USE FOR UNKNOWN INDICATION
     Dosage: 1 TABLET, DAILY
     Route: 065
  5. VALTREX [Concomitant]
     Indication: ORAL HERPES
     Dosage: .5 MG, DAILY
     Route: 065
  6. MULTIVITAMIN                       /00831701/ [Concomitant]
     Indication: DRUG USE FOR UNKNOWN INDICATION
     Dosage: 1 PILL PER DAY
     Route: 065

REACTIONS (3)
  - MALAISE [None]
  - NEOPLASM MALIGNANT [None]
  - VOMITING [None]
